FAERS Safety Report 7520845-9 (Version None)
Quarter: 2011Q2

REPORT INFORMATION
  Report Type: 
  Country: None (occurrence: None)
  Receive Date: 20110603
  Receipt Date: 20100913
  Transmission Date: 20111010
  Serious: Yes (Death, Hospitalization)
  Sender: FDA-Public Use
  Company Number: JP-BAYER-201014238BYL

PATIENT
  Age: 86 Year
  Sex: Female
  Weight: 47 kg

DRUGS (19)
  1. LASIX [Concomitant]
     Dosage: 20 MG (DAILY DOSE), , ORAL
     Route: 048
     Dates: start: 20100626, end: 20100710
  2. NEXAVAR [Suspect]
     Route: 048
     Dates: start: 20100722, end: 20100816
  3. LIVACT [Concomitant]
     Dosage: 3 DF (DAILY DOSE), , ORAL
     Route: 048
     Dates: start: 20091228, end: 20100807
  4. HERBAL PREPARATION [Concomitant]
     Indication: ABDOMINAL DISTENSION
     Dosage: 7.5 G (DAILY DOSE), , ORAL
     Route: 048
     Dates: start: 20091228
  5. LASIX [Concomitant]
     Dosage: 20 MG (DAILY DOSE), , ORAL
     Route: 048
     Dates: start: 20100726
  6. LOXONIN [Concomitant]
     Indication: BACK PAIN
     Dosage: 100 MG (DAILY DOSE), , TRANSDERMAL
     Route: 062
     Dates: start: 20100721
  7. GLYCYRON [Concomitant]
     Indication: PROPHYLAXIS
     Dosage: 6 DF (DAILY DOSE), , ORAL
     Route: 048
     Dates: start: 20091228
  8. UREPEARL [Concomitant]
     Indication: PROPHYLAXIS
     Route: 061
     Dates: start: 20100625
  9. URSO 250 [Concomitant]
     Indication: PROPHYLAXIS
     Dosage: 600 MG (DAILY DOSE), , ORAL
     Route: 048
     Dates: start: 20091228
  10. RABEPRAZOLE SODIUM [Concomitant]
     Indication: REFLUX OESOPHAGITIS
     Dosage: 10 MG (DAILY DOSE), , ORAL
     Route: 048
     Dates: start: 20091228
  11. LAC B [Concomitant]
     Dosage: 3 G (DAILY DOSE), , ORAL
     Route: 048
     Dates: start: 20100709, end: 20100728
  12. GASMOTIN [Concomitant]
     Indication: ABDOMINAL DISTENSION
     Dosage: 15 MG (DAILY DOSE), , ORAL
     Route: 048
     Dates: start: 20100709
  13. AMINOLEBAN EN [Concomitant]
     Indication: HYPERAMMONAEMIA
     Dosage: 150 G (DAILY DOSE), , ORAL
     Route: 048
     Dates: start: 20100807
  14. NEXAVAR [Suspect]
     Indication: HEPATIC NEOPLASM MALIGNANT
     Dosage: 400 MG (DAILY DOSE), , ORAL
     Route: 048
     Dates: start: 20100624
  15. GASCON [Concomitant]
     Indication: ABDOMINAL DISTENSION
     Dosage: 120 MG (DAILY DOSE), , ORAL
     Route: 048
     Dates: start: 20091228
  16. LASIX [Concomitant]
     Indication: ASCITES
     Dosage: 40 MG (DAILY DOSE), , ORAL
     Route: 048
     Dates: start: 20100220, end: 20100625
  17. KINDAVATE [Concomitant]
     Route: 061
  18. PURSENNID [Concomitant]
     Indication: CONSTIPATION
     Dosage: 24 MG (DAILY DOSE), , ORAL
     Route: 048
     Dates: start: 20100720
  19. ALDACTONE [Concomitant]
     Dosage: 25 MG (DAILY DOSE), , ORAL
     Route: 048
     Dates: start: 20100703, end: 20100710

REACTIONS (5)
  - ABDOMINAL DISTENSION [None]
  - RASH [None]
  - ABDOMINAL PAIN [None]
  - LIVER CARCINOMA RUPTURED [None]
  - HEPATIC FAILURE [None]
